FAERS Safety Report 17529201 (Version 2)
Quarter: 2020Q1

REPORT INFORMATION
  Report Type: Report from Study
  Country: None (occurrence: US)
  Receive Date: 20200312
  Receipt Date: 20200312
  Transmission Date: 20200409
  Serious: Yes (Death)
  Sender: FDA-Public Use
  Company Number: US-ABBVIE-20K-163-3314900-00

PATIENT
  Sex: Male

DRUGS (2)
  1. VENCLEXTA [Suspect]
     Active Substance: VENETOCLAX
     Indication: ACUTE LYMPHOCYTIC LEUKAEMIA RECURRENT
     Dosage: TAKE 1 TABLET (100MG) BY MOUTH ON DAY 1. TAKE EACH DOSE WITH FOOD.
     Route: 048
  2. VENCLEXTA [Suspect]
     Active Substance: VENETOCLAX
     Dosage: THEN TAKE 2 TABLETS (200MG) ON DAY 2 AND ALL DAYS THEREAFTER. TAKE EACH DOSE WITH FOOD.
     Route: 048

REACTIONS (2)
  - Death [Fatal]
  - Off label use [Unknown]
